FAERS Safety Report 8764363 (Version 1)
Quarter: 2012Q4

REPORT INFORMATION
  Report Type: 
  Country: MX (occurrence: MX)
  Receive Date: 20120831
  Receipt Date: 20120831
  Transmission Date: 20130627
  Serious: Yes (Other)
  Sender: FDA-Public Use
  Company Number: PHHY2010MX094526

PATIENT
  Sex: Male

DRUGS (1)
  1. ONBREZ [Suspect]

REACTIONS (6)
  - Arrhythmia [Unknown]
  - Dyspnoea [Unknown]
  - Asphyxia [Unknown]
  - Agitation [Unknown]
  - Abasia [Unknown]
  - Drug ineffective [Unknown]
